FAERS Safety Report 7467441-X (Version None)
Quarter: 2011Q2

REPORT INFORMATION
  Report Type: 
  Country: None (occurrence: None)
  Receive Date: 20110509
  Receipt Date: 20110202
  Transmission Date: 20111010
  Serious: Yes (Other)
  Sender: FDA-Public Use
  Company Number: US-ALEXION-A201001656

PATIENT
  Sex: Female

DRUGS (11)
  1. CYCLOSPORINE [Concomitant]
     Dosage: UNK
     Route: 048
  2. BENADRYL [Concomitant]
     Indication: PREMEDICATION
  3. SOLU-MEDROL [Concomitant]
     Indication: PREMEDICATION
  4. SOLIRIS [Suspect]
     Dosage: 900 MG, Q2W
     Route: 042
     Dates: start: 20101220, end: 20110104
  5. PROVERA [Concomitant]
     Dosage: UNK
  6. TYLENOL (CAPLET) [Concomitant]
     Indication: PREMEDICATION
  7. SOLIRIS [Suspect]
     Indication: PAROXYSMAL NOCTURNAL HAEMOGLOBINURIA
     Dosage: 600 MG, QW
     Route: 042
     Dates: start: 20101119, end: 20101210
  8. MAGNESIUM [Concomitant]
     Dosage: UNK
  9. ACYCLOVIR [Concomitant]
     Dosage: UNK
  10. FOLIC ACID [Concomitant]
     Dosage: UNK
  11. ZANTAC                             /00550802/ [Concomitant]

REACTIONS (2)
  - HAEMOGLOBIN DECREASED [None]
  - DRUG INEFFECTIVE [None]
